FAERS Safety Report 17029883 (Version 3)
Quarter: 2020Q1

REPORT INFORMATION
  Report Type: Spontaneous
  Country: PL (occurrence: PL)
  Receive Date: 20191114
  Receipt Date: 20200213
  Transmission Date: 20200409
  Serious: Yes (Hospitalization)
  Sender: FDA-Public Use
  Company Number: NVSC2019PL033913

PATIENT
  Age: 66 Year
  Sex: Female

DRUGS (8)
  1. GLIMEPIRIDE. [Suspect]
     Active Substance: GLIMEPIRIDE
     Indication: TYPE 2 DIABETES MELLITUS
     Dosage: 6 MG, QD
     Route: 065
  2. INSULIN [Suspect]
     Active Substance: INSULIN NOS
     Dosage: 12 U (MORNING)
     Route: 065
  3. INSULIN [Suspect]
     Active Substance: INSULIN NOS
     Dosage: 10 U (BEFORE DINNER)
     Route: 065
  4. METFORMIN [Suspect]
     Active Substance: METFORMIN HYDROCHLORIDE
     Dosage: 3 GRAM DAILY
     Route: 048
  5. METFORMIN [Suspect]
     Active Substance: METFORMIN HYDROCHLORIDE
     Indication: TYPE 2 DIABETES MELLITUS
     Dosage: 1000 MG (3 TIMES A DAY-3G/24H)
     Route: 048
  6. METFORMIN [Suspect]
     Active Substance: METFORMIN HYDROCHLORIDE
     Dosage: 3 G, QD
     Route: 048
  7. INSULIN [Suspect]
     Active Substance: INSULIN NOS
     Dosage: 6 U (BEFORE DINNER)
     Route: 042
  8. INSULIN [Suspect]
     Active Substance: INSULIN NOS
     Indication: TYPE 2 DIABETES MELLITUS
     Dosage: 10 U (BEFORE BREAKFAST)
     Route: 042

REACTIONS (4)
  - Hyperglycaemia [Recovered/Resolved]
  - Treatment failure [Unknown]
  - Glycosylated haemoglobin abnormal [Recovered/Resolved]
  - Drug ineffective [Unknown]
